FAERS Safety Report 24146485 (Version 1)
Quarter: 2024Q3

REPORT INFORMATION
  Report Type: Spontaneous
  Country: US (occurrence: None)
  Receive Date: 20240726
  Receipt Date: 20240726
  Transmission Date: 20241016
  Serious: No
  Sender: Public
  Company Number: None

PATIENT
  Age: 46 Year
  Sex: Female
  Weight: 179.1 kg

DRUGS (8)
  1. CARVEDILOL [Suspect]
     Active Substance: CARVEDILOL
     Indication: Blood pressure increased
     Dosage: 1 TABLET TWICE A DAY ORAL
     Route: 048
     Dates: start: 20240603, end: 20240618
  2. METFORMIN HYDROCHLORIDE [Concomitant]
     Active Substance: METFORMIN HYDROCHLORIDE
  3. HYDROCHLOROTHIAZIDE\LISINOPRIL [Concomitant]
     Active Substance: HYDROCHLOROTHIAZIDE\LISINOPRIL
  4. EZETIMIBE [Concomitant]
     Active Substance: EZETIMIBE
  5. TERBINAFINE HYDROCHLORIDE [Concomitant]
     Active Substance: TERBINAFINE HYDROCHLORIDE
  6. Equate women^s 1 a day multi - vitamin [Concomitant]
  7. ADVIL [Concomitant]
     Active Substance: IBUPROFEN\IBUPROFEN SODIUM
  8. ALEVE [Concomitant]
     Active Substance: NAPROXEN SODIUM

REACTIONS (6)
  - Headache [None]
  - Arthralgia [None]
  - Nausea [None]
  - Diarrhoea [None]
  - Dizziness [None]
  - Abdominal distension [None]

NARRATIVE: CASE EVENT DATE: 20240616
